FAERS Safety Report 10204013 (Version 2)
Quarter: 2014Q3

REPORT INFORMATION
  Report Type: Spontaneous
  Country: JP (occurrence: JP)
  Receive Date: 20140529
  Receipt Date: 20140702
  Transmission Date: 20150326
  Serious: No
  Sender: FDA-Public Use
  Company Number: JP-MALLINCKRODT-T201402303

PATIENT
  Age: 49 Year
  Sex: Male
  Weight: 52 kg

DRUGS (12)
  1. METHADONE [Suspect]
     Active Substance: METHADONE HYDROCHLORIDE
     Indication: CANCER PAIN
     Dosage: 10 MG, (30 MG DAILY DOSE)
     Route: 048
     Dates: start: 20140407, end: 20140414
  2. LYRICA [Concomitant]
     Active Substance: PREGABALIN
     Dosage: 150 MG, UNK
     Route: 048
     Dates: start: 20140404, end: 20140408
  3. LANSOPRAZOLE. [Concomitant]
     Active Substance: LANSOPRAZOLE
     Dosage: 15 MG, UNK
     Route: 048
     Dates: end: 20140423
  4. OPSO [Concomitant]
     Active Substance: MORPHINE HYDROCHLORIDE
     Dosage: 30 MG, PRN
     Route: 048
     Dates: start: 20140406, end: 20140413
  5. VERAPAMIL HCL [Concomitant]
     Active Substance: VERAPAMIL HYDROCHLORIDE
     Dosage: 12 MG, PRN
     Route: 051
     Dates: start: 20140418
  6. METHADONE [Suspect]
     Active Substance: METHADONE HYDROCHLORIDE
     Dosage: 15 MG, (45 MG DAILY DOSE)
     Route: 048
     Dates: start: 20140415, end: 20140421
  7. VOLTAREN [Concomitant]
     Active Substance: DICLOFENAC SODIUM
     Dosage: 75 MG, UNK
     Route: 048
     Dates: start: 20130924, end: 20140408
  8. MAGLAX [Concomitant]
     Active Substance: MAGNESIUM OXIDE
     Dosage: 1980 MG, UNK
     Route: 048
     Dates: end: 20140410
  9. HICORT [Concomitant]
     Dosage: 4 MG, UNK
     Route: 051
     Dates: start: 20140409, end: 20140415
  10. OLIVES [Concomitant]
     Dosage: 480 MG, UNK
     Route: 051
     Dates: start: 20140424, end: 20140508
  11. MS CONTIN [Concomitant]
     Active Substance: MORPHINE SULFATE
  12. LYRICA [Concomitant]
     Active Substance: PREGABALIN
     Dosage: 75 MG, UNK
     Route: 048
     Dates: start: 20140409, end: 20140423

REACTIONS (4)
  - Delirium [Not Recovered/Not Resolved]
  - Increased bronchial secretion [Not Recovered/Not Resolved]
  - Insomnia [Not Recovered/Not Resolved]
  - Vomiting [Not Recovered/Not Resolved]

NARRATIVE: CASE EVENT DATE: 20140409
